FAERS Safety Report 9528027 (Version 1)
Quarter: 2013Q1

REPORT INFORMATION
  Report Type: Spontaneous
  Country: US (occurrence: None)
  Receive Date: 20130313
  Receipt Date: 20130313
  Transmission Date: 20140127
  Serious: No
  Sender: FDA-Public Use
  Company Number: 1000029217

PATIENT
  Age: 30 Year
  Sex: Female

DRUGS (4)
  1. SAVELLA (MILNACIPRAN HYDROCHLORIDE) (12.5 MILLIGRAM, TABLETS) [Suspect]
     Dosage: 12.5 MG (12.5 MG, 1 IN 1 D),ORAL
     Route: 048
     Dates: start: 20110328, end: 20110328
  2. SAVELLA [Suspect]
     Dosage: 100 MG (50 MG,2 IN 1 D),ORAL
     Route: 048
     Dates: start: 20110404, end: 201106
  3. MELOXICAM (MELOXICAM) [Suspect]
  4. BIRTH CONTROL [Suspect]

REACTIONS (3)
  - Vomiting [None]
  - Diarrhoea [None]
  - Headache [None]
